FAERS Safety Report 6443218-9 (Version None)
Quarter: 2009Q4

REPORT INFORMATION
  Report Type: 
  Country: None (occurrence: None)
  Receive Date: 20091117
  Receipt Date: 20090511
  Transmission Date: 20100525
  Serious: Yes (Life-Threatening, Hospitalization)
  Sender: FDA-Public Use
  Company Number: CZ-SANOFI-AVENTIS-D01200807991

PATIENT
  Age: 78 Year
  Sex: Female
  Weight: 78 kg

DRUGS (19)
  1. WARFARIN SODIUM [Suspect]
     Indication: PULMONARY EMBOLISM
     Dosage: DOSE TEXT: PLACEBO SSR126517 + ORAL INR-ADJUSTED WARFARIN
     Dates: start: 20081030
  2. ENOXAPARIN SODIUM [Suspect]
     Indication: PULMONARY EMBOLISM
     Dosage: UNIT DOSE: 1 MG/KG
     Route: 058
     Dates: start: 20081028, end: 20081108
  3. ENOXAPARIN SODIUM [Suspect]
     Dosage: UNIT DOSE: 1 MG/KG
     Route: 058
     Dates: start: 20081110, end: 20081111
  4. LOKREN [Concomitant]
     Indication: HYPERTENSION
     Dates: end: 20081029
  5. FOSAMAX [Concomitant]
     Indication: OSTEOPOROSIS
  6. ASCORBIC ACID/RUTOSIDE [Concomitant]
     Dosage: DOSE TEXT: 2 TABLETS
     Dates: end: 20081028
  7. VESSEL DUE F [Concomitant]
     Dates: end: 20081028
  8. PENTOMER [Concomitant]
     Dosage: DOSE TEXT: 2 TABLETS
     Dates: end: 20081028
  9. ATORVASTATIN [Concomitant]
     Dosage: DOSE TEXT: 1 TABLET
     Dates: end: 20081030
  10. VITAMIN D [Concomitant]
     Indication: OSTEOPOROSIS
  11. HELICID [Concomitant]
     Indication: PEPTIC ULCER
     Dosage: DOSE TEXT: 1 TABLET
     Dates: start: 20081028, end: 20081112
  12. ISOSORBIDE DINITRATE [Concomitant]
     Indication: HYPERTENSION
     Dates: start: 20081028, end: 20081103
  13. ACETYLSALICYLIC ACID/GLYCEROL [Concomitant]
     Dates: start: 20081029, end: 20081030
  14. SYNTOPHYLLIN [Concomitant]
     Dosage: DOSE TEXT: 1 AMPOULE
     Route: 042
     Dates: start: 20081029, end: 20081029
  15. ATROVENT [Concomitant]
     Dates: start: 20081029, end: 20081110
  16. FUROSEMIDE [Concomitant]
     Dates: start: 20081029, end: 20081104
  17. LEXAURIN [Concomitant]
     Indication: SEDATIVE THERAPY
     Dosage: DOSE TEXT: 1 TABLET
     Dates: start: 20081029, end: 20081030
  18. CORDARONE [Concomitant]
     Indication: TACHYCARDIA
     Dosage: DOSE TEXT: 4 AMPOULES
     Dates: start: 20081030, end: 20081030
  19. AUGMENTIN '125' [Concomitant]
     Indication: BRONCHITIS
     Dates: start: 20081030, end: 20081112

REACTIONS (3)
  - ACUTE RESPIRATORY FAILURE [None]
  - INTERNATIONAL NORMALISED RATIO INCREASED [None]
  - PRESYNCOPE [None]
